FAERS Safety Report 8139964 (Version 6)
Quarter: 2013Q4

REPORT INFORMATION
  Report Type: Report from Study
  Country: DE (occurrence: DE)
  Receive Date: 20110916
  Receipt Date: 20131014
  Transmission Date: 20140711
  Serious: Yes (Hospitalization)
  Sender: FDA-Public Use
  Company Number: DE-ROCHE-710671

PATIENT
  Age: 54 Year
  Sex: Female
  Weight: 99 kg

DRUGS (6)
  1. TRASTUZUMAB [Suspect]
     Indication: BREAST CANCER
     Dosage: FORM: VIALS. LOADING DOSE., 725 MG
     Route: 042
  2. TRASTUZUMAB [Suspect]
     Dosage: LAST DOSE PROIR TO SAE : 22 APRIL 2010. MAINTENANCE DOSE
     Route: 042
  3. EPIRUBICIN [Suspect]
     Indication: HER-2 POSITIVE BREAST CANCER
     Dosage: LAST DOSE PRIOR TO SAE ON 04/JUL/2010. TOTAL DOSE 182 MG.
     Route: 042
     Dates: start: 20100314
  4. CYCLOPHOSPHAMIDE [Suspect]
     Indication: HER-2 POSITIVE BREAST CANCER
     Dosage: LAST DOSE PRIOR TO SAE ON 04/JUN/2010 FROM VIALS, TOTAL DOSE 1212 MG
     Route: 042
     Dates: start: 20100314
  5. DOCETAXEL [Suspect]
     Indication: HER-2 POSITIVE BREAST CANCER
     Dosage: DATE OF LAST DOSE PRIOR TO SAE ON 22/APR/2010 FORM VIALS, TOTAL DOSE 203 MG.
     Route: 042
     Dates: start: 20100304
  6. 5-FLUOROURACIL [Suspect]
     Indication: HER-2 POSITIVE BREAST CANCER
     Dosage: FORM VIALS, TOTAL DOSE 1212 MG LAST DOSE PRIOR TO SAE: 04/JUN/2010
     Route: 042
     Dates: start: 20100314

REACTIONS (1)
  - General symptom [Recovered/Resolved]
